FAERS Safety Report 5357700-9 (Version None)
Quarter: 2007Q2

REPORT INFORMATION
  Report Type: 
  Country: None (occurrence: None)
  Receive Date: 20070614
  Receipt Date: 20070605
  Transmission Date: 20071010
  Serious: Yes (Hospitalization)
  Sender: FDA-Public Use
  Company Number: US-SANOFI-SYNTHELABO-A03200703543

PATIENT
  Sex: Male
  Weight: 102.1 kg

DRUGS (7)
  1. LYRICA [Concomitant]
     Dosage: UNK
     Route: 065
  2. ASPIRIN [Concomitant]
     Dosage: UNK
     Route: 065
  3. AMARYL [Concomitant]
     Dosage: UNK
     Route: 065
  4. LOPRESSOR [Concomitant]
     Dosage: UNK
     Route: 065
  5. LIPITOR [Concomitant]
     Dosage: UNK
     Route: 065
  6. PROTONIX [Concomitant]
     Dosage: UNK
     Route: 065
     Dates: end: 20070501
  7. PLAVIX [Suspect]
     Indication: STENT PLACEMENT
     Route: 048
     Dates: start: 20061009

REACTIONS (11)
  - ANXIETY [None]
  - BACK PAIN [None]
  - DYSPNOEA [None]
  - FACIAL PAIN [None]
  - HEADACHE [None]
  - INSOMNIA [None]
  - NAUSEA [None]
  - PANCREATITIS [None]
  - PRODUCTIVE COUGH [None]
  - SYNCOPE [None]
  - VOMITING [None]
